FAERS Safety Report 4745474-1 (Version None)
Quarter: 2005Q3

REPORT INFORMATION
  Report Type: 
  Country: None (occurrence: None)
  Receive Date: 20050811
  Receipt Date: 20050804
  Transmission Date: 20060218
  Serious: Yes (Hospitalization, Other)
  Sender: FDA-Public Use
  Company Number: 2005111897

PATIENT
  Age: 70 Year
  Sex: Male

DRUGS (3)
  1. LIPITOR [Suspect]
     Indication: BLOOD CHOLESTEROL INCREASED
     Dosage: 20 MG (20 MG, 1 IN 1 D),
     Dates: start: 20000101, end: 20050701
  2. BISOPROLOL (BISOPROLOL) [Concomitant]
  3. LISINOPRIL [Concomitant]

REACTIONS (5)
  - ABDOMINAL PAIN [None]
  - CAROTID ARTERY OCCLUSION [None]
  - CORONARY ARTERY OCCLUSION [None]
  - HERNIA [None]
  - WEIGHT DECREASED [None]
